FAERS Safety Report 20750117 (Version 4)
Quarter: 2022Q3

REPORT INFORMATION
  Report Type: Spontaneous
  Country: US (occurrence: US)
  Receive Date: 20220426
  Receipt Date: 20220831
  Transmission Date: 20221027
  Serious: No
  Sender: FDA-Public Use
  Company Number: US-PFIZER INC-202200610741

PATIENT
  Age: 64 Year
  Sex: Female
  Weight: 94.35 kg

DRUGS (4)
  1. IBRANCE [Suspect]
     Active Substance: PALBOCICLIB
     Indication: Bone cancer
     Dosage: 100 MG, CYCLIC (ONCE A DAY FOR 21 DAYS AND HAVE ONE WEEK OFF AND THEN START BACK)
  2. ANASTROZOLE [Concomitant]
     Active Substance: ANASTROZOLE
     Dosage: 1 MG
  3. ZESTRIL [Concomitant]
     Active Substance: LISINOPRIL
     Indication: Blood pressure measurement
     Dosage: 20 MG
     Dates: start: 20220330
  4. CHOLECALCIFEROL [Concomitant]
     Active Substance: CHOLECALCIFEROL
     Indication: COVID-19
     Dosage: 1000 IU

REACTIONS (5)
  - Product dose omission issue [Unknown]
  - Hypertension [Unknown]
  - Blood viscosity increased [Unknown]
  - Blood viscosity decreased [Unknown]
  - Oropharyngeal pain [Recovered/Resolved]

NARRATIVE: CASE EVENT DATE: 20220401
